FAERS Safety Report 9407279 (Version 1)
Quarter: 2013Q3

REPORT INFORMATION
  Report Type: Spontaneous
  Country: FR (occurrence: FR)
  Receive Date: 20130718
  Receipt Date: 20130718
  Transmission Date: 20140515
  Serious: Yes (Hospitalization)
  Sender: FDA-Public Use
  Company Number: FR-PFIZER INC-2013207280

PATIENT
  Age: 53 Year
  Sex: Male

DRUGS (15)
  1. ENBREL [Suspect]
     Indication: RHEUMATOID ARTHRITIS
     Dosage: 1 DF, WEEKLY
     Route: 058
     Dates: end: 201305
  2. NOVATREX [Suspect]
     Indication: RHEUMATOID ARTHRITIS
     Dosage: 7.5 MG, WEEKLY
     Route: 048
     Dates: end: 201305
  3. FELDENE [Suspect]
     Indication: ARTHRALGIA
     Dosage: 20 MG, 1X/DAY
     Route: 048
     Dates: start: 20130517, end: 20130520
  4. APRANAX [Suspect]
     Indication: RHEUMATOID ARTHRITIS
     Dosage: 550 MG, 2X/DAY AS NEEDED
     Dates: end: 201305
  5. PROFENID [Suspect]
     Dosage: 100 MG DAILY
     Route: 048
     Dates: start: 20130521, end: 20130521
  6. PROFENID [Suspect]
     Dosage: 100 MG, 2X/DAY
     Route: 048
     Dates: start: 20130522, end: 20130522
  7. KETOPROFEN [Suspect]
     Dosage: 1 DF, 2X/DAY
     Route: 061
     Dates: start: 20130517, end: 20130520
  8. SPECIAFOLDINE [Concomitant]
     Indication: RHEUMATOID ARTHRITIS
     Dosage: 10 MG, WEEKLY
  9. OGASTORO [Concomitant]
  10. TAHOR [Concomitant]
  11. LEXOMIL [Concomitant]
     Dosage: 0.25 DF
  12. VOLTARENE [Concomitant]
  13. MIOREL [Concomitant]
     Dosage: 3 DF DAILY
     Dates: start: 20130517
  14. KETUM [Concomitant]
     Dosage: UNK
     Dates: start: 20130517
  15. IXPRIM [Concomitant]
     Dosage: 4 DF DAILY
     Dates: start: 20130517

REACTIONS (1)
  - Dermo-hypodermitis [Recovered/Resolved]
